FAERS Safety Report 8109799-4 (Version None)
Quarter: 2012Q1

REPORT INFORMATION
  Report Type: 
  Country: None (occurrence: None)
  Receive Date: 20120202
  Receipt Date: 20120120
  Transmission Date: 20120608
  Serious: No
  Sender: FDA-Public Use
  Company Number: US-AMGEN-USASP2012004359

PATIENT
  Age: 34 Year
  Sex: Male

DRUGS (2)
  1. ENBREL [Suspect]
     Indication: PSORIATIC ARTHROPATHY
     Dosage: 50 MG, QWK
     Dates: start: 20110729, end: 20120109
  2. ENBREL [Suspect]
     Indication: PSORIASIS

REACTIONS (5)
  - CARDIAC FLUTTER [None]
  - DYSPNOEA [None]
  - PSORIASIS [None]
  - NECK PAIN [None]
  - HEADACHE [None]
